FAERS Safety Report 18465322 (Version 1)
Quarter: 2020Q4

REPORT INFORMATION
  Report Type: Spontaneous
  Country: US (occurrence: US)
  Receive Date: 20201104
  Receipt Date: 20201104
  Transmission Date: 20210114
  Serious: Yes (Hospitalization, Disabling, Other)
  Sender: FDA-Public Use
  Company Number: US-PURDUE-USA-2020-0174678

PATIENT
  Sex: Male

DRUGS (16)
  1. MORPHINE SULFATE EXTENDED-RELEASE TABLETS (RHODES 74-769, 74-862) [Suspect]
     Active Substance: MORPHINE SULFATE
     Indication: PRODUCT USED FOR UNKNOWN INDICATION
     Dosage: 60 MG, DAILY
     Route: 048
  2. MORPHINE SULFATE EXTENDED-RELEASE TABLETS (RHODES 74-769, 74-862) [Suspect]
     Active Substance: MORPHINE SULFATE
     Dosage: 100 MG, BID
     Route: 048
  3. OXYCODONE HCL CR TABLETS (SIMILAR TO NDA 22-272) [Suspect]
     Active Substance: OXYCODONE HYDROCHLORIDE
     Indication: PRODUCT USED FOR UNKNOWN INDICATION
     Dosage: UNKNOWN
     Route: 048
  4. HYDROCODONE BITARTRATE AND ACETAMINOPHEN [Suspect]
     Active Substance: ACETAMINOPHEN\HYDROCODONE BITARTRATE
     Indication: PRODUCT USED FOR UNKNOWN INDICATION
     Dosage: 7.5/500 MG, Q6H PRN
     Route: 048
  5. ACTIQ [Suspect]
     Active Substance: FENTANYL CITRATE
     Indication: BREAKTHROUGH PAIN
     Dosage: 800 MCG, DAILY
     Route: 060
  6. ACTIQ [Suspect]
     Active Substance: FENTANYL CITRATE
     Dosage: 800 MCG, Q1- 2H PRN
     Route: 060
  7. HYDROCODONE BITARTRATE W/IBUPROFEN [Suspect]
     Active Substance: HYDROCODONE BITARTRATE\IBUPROFEN
     Indication: PRODUCT USED FOR UNKNOWN INDICATION
     Dosage: 7.5/200 MG, Q4H PRN
     Route: 048
  8. HYDROCODONE BITARTRATE AND ACETAMINOPHEN [Suspect]
     Active Substance: ACETAMINOPHEN\HYDROCODONE BITARTRATE
     Dosage: 7.5/325 MG, Q4H PRN
     Route: 048
  9. HYDROMORPHONE TABLETS [Suspect]
     Active Substance: HYDROMORPHONE
     Indication: PRODUCT USED FOR UNKNOWN INDICATION
     Dosage: 4 MG, Q4H
     Route: 048
  10. HYDROCODONE BITARTRATE (SIMILAR TO NDA 206627) [Suspect]
     Active Substance: HYDROCODONE BITARTRATE
     Indication: PRODUCT USED FOR UNKNOWN INDICATION
     Dosage: 60 MG, DAILY
     Route: 048
  11. DILAUDID [Suspect]
     Active Substance: HYDROMORPHONE HYDROCHLORIDE
     Indication: PRODUCT USED FOR UNKNOWN INDICATION
     Dosage: 4 MG, Q4H
     Route: 048
  12. FENTANYL. [Suspect]
     Active Substance: FENTANYL
     Indication: PRODUCT USED FOR UNKNOWN INDICATION
     Dosage: 25 MCG/HR, DAILY
     Route: 062
  13. OXYMORPHONE [Suspect]
     Active Substance: OXYMORPHONE
     Indication: PRODUCT USED FOR UNKNOWN INDICATION
     Dosage: 30 MG, DAILY
     Route: 048
  14. OXYCODONE/ ACETAMINOPHEN TABLETS [Suspect]
     Active Substance: ACETAMINOPHEN\OXYCODONE HYDROCHLORIDE
     Indication: PRODUCT USED FOR UNKNOWN INDICATION
     Dosage: 10/325 MG, Q4H
     Route: 048
  15. AMBIEN [Suspect]
     Active Substance: ZOLPIDEM TARTRATE
     Indication: INSOMNIA
     Dosage: 10 MG, HS
     Route: 048
  16. DURAGESIC [Suspect]
     Active Substance: FENTANYL
     Indication: PRODUCT USED FOR UNKNOWN INDICATION
     Dosage: 75 MCG/HR, DAILY
     Route: 062

REACTIONS (15)
  - Drug abuse [Unknown]
  - Tooth loss [Unknown]
  - Drug dependence [Unknown]
  - Overdose [Unknown]
  - Dry mouth [Unknown]
  - Physical disability [Unknown]
  - Sedation [Unknown]
  - Dental caries [Unknown]
  - Psychological trauma [Unknown]
  - Malnutrition [Unknown]
  - Incoherent [Unknown]
  - Emotional distress [Unknown]
  - Pain [Unknown]
  - Injury [Unknown]
  - Insomnia [Unknown]
